FAERS Safety Report 22007995 (Version 1)
Quarter: 2023Q1

REPORT INFORMATION
  Report Type: Spontaneous
  Country: AU (occurrence: AU)
  Receive Date: 20230218
  Receipt Date: 20230218
  Transmission Date: 20230418
  Serious: Yes (Hospitalization, Other)
  Sender: FDA-Public Use
  Company Number: AU-AMGEN-AUSSP2023026912

PATIENT
  Age: 78 Year
  Sex: Male

DRUGS (9)
  1. PROLIA [Suspect]
     Active Substance: DENOSUMAB
     Indication: Product used for unknown indication
     Dosage: UNK
     Route: 065
     Dates: start: 20221125
  2. CARVEDILOL [Concomitant]
     Active Substance: CARVEDILOL
  3. DUTASTERIDE\TAMSULOSIN [Concomitant]
     Active Substance: DUTASTERIDE\TAMSULOSIN
     Dosage: 500/400
  4. ELIQUIS [Concomitant]
     Active Substance: APIXABAN
  5. EUTROXSIG [Concomitant]
     Active Substance: LEVOTHYROXINE SODIUM
  6. MESALAMINE [Concomitant]
     Active Substance: MESALAMINE
  7. PANTOPRAZOLE SODIUM [Concomitant]
     Active Substance: PANTOPRAZOLE SODIUM
  8. PHENERGAN [Concomitant]
     Active Substance: PROMETHAZINE HYDROCHLORIDE
  9. TROVAS [Concomitant]

REACTIONS (3)
  - Urinary retention [Recovered/Resolved]
  - Hypophosphataemia [Recovered/Resolved]
  - Hypocalcaemia [Recovered/Resolved]

NARRATIVE: CASE EVENT DATE: 20221125
